FAERS Safety Report 4304063-3 (Version None)
Quarter: 2004Q1

REPORT INFORMATION
  Report Type: 
  Country: None (occurrence: None)
  Receive Date: 20040223
  Receipt Date: 20040105
  Transmission Date: 20041129
  Serious: No
  Sender: FDA-Public Use
  Company Number: PHEH2004US00486

PATIENT
  Age: 42 Year
  Sex: Female

DRUGS (7)
  1. ZELNORM [Suspect]
     Indication: IRRITABLE BOWEL SYNDROME
     Dosage: 6 MG, BID, ORAL
     Route: 048
     Dates: start: 20031230
  2. MIRALAX [Concomitant]
  3. ROBINUL (GLYCOPYRRONIUM BROMIDE) [Concomitant]
  4. ACIPHEX [Concomitant]
  5. LORTAB [Concomitant]
  6. AMBIEN [Concomitant]
  7. HYOSCYAMINE (HYOSCYAMINE) [Concomitant]

REACTIONS (4)
  - ABASIA [None]
  - ARTHRALGIA [None]
  - JOINT SWELLING [None]
  - MUSCULOSKELETAL STIFFNESS [None]
